FAERS Safety Report 12088355 (Version 1)
Quarter: 2016Q1

REPORT INFORMATION
  Report Type: Spontaneous
  Country: US (occurrence: US)
  Receive Date: 20160218
  Receipt Date: 20160218
  Transmission Date: 20160526
  Serious: No
  Sender: FDA-Public Use
  Company Number: US-APOTEX-2015AP014528

PATIENT
  Age: 46 Year
  Sex: Female

DRUGS (2)
  1. MODAFINIL TABLETS USP [Suspect]
     Active Substance: MODAFINIL
     Dosage: 100 MG ADDITIONAL DOSE IF NEEDED
  2. MODAFINIL TABLETS USP [Suspect]
     Active Substance: MODAFINIL
     Indication: NARCOLEPSY
     Dosage: 200 MG, IN THE MORNING
     Route: 065

REACTIONS (1)
  - Gambling disorder [Recovered/Resolved]
